FAERS Safety Report 11437204 (Version 1)
Quarter: 2015Q3

REPORT INFORMATION
  Report Type: Spontaneous
  Country: US (occurrence: US)
  Receive Date: 20150821
  Receipt Date: 20150821
  Transmission Date: 20151125
  Serious: No
  Sender: FDA-Public Use
  Company Number: US-ELI_LILLY_AND_COMPANY-US200703002935

PATIENT
  Sex: Female

DRUGS (3)
  1. WELLBUTRIN XL [Concomitant]
     Active Substance: BUPROPION HYDROCHLORIDE
     Indication: DEPRESSION
     Dosage: 300 MG, DAILY (1/D)
  2. CYMBALTA [Suspect]
     Active Substance: DULOXETINE HYDROCHLORIDE
     Indication: DEPRESSION
     Dosage: 30 MG, DAILY (1/D)
     Route: 048
     Dates: start: 2005
  3. LAMICTAL [Concomitant]
     Active Substance: LAMOTRIGINE
     Indication: BIPOLAR DISORDER
     Dosage: UNK D/F, DAILY (1/D)

REACTIONS (9)
  - Dissociation [Unknown]
  - Hyperhidrosis [Unknown]
  - Feeling jittery [Recovering/Resolving]
  - Nausea [Unknown]
  - Dizziness [Unknown]
  - Pain [Unknown]
  - Drug effect decreased [Unknown]
  - Visual impairment [Unknown]
  - Panic attack [Unknown]

NARRATIVE: CASE EVENT DATE: 200703
